FAERS Safety Report 5706794-7 (Version None)
Quarter: 2008Q2

REPORT INFORMATION
  Report Type: 
  Country: None (occurrence: None)
  Receive Date: 20080415
  Receipt Date: 20080415
  Transmission Date: 20081010
  Serious: No
  Sender: FDA-Public Use
  Company Number: None

PATIENT
  Age: 52 Year
  Sex: Female
  Weight: 49.8957 kg

DRUGS (1)
  1. CICLOPIROX [Suspect]
     Indication: ONYCHOMYCOSIS
     Dosage: COATING ONCE DAILY TOP
     Route: 061
     Dates: start: 20071201, end: 20080414

REACTIONS (2)
  - DRUG INEFFECTIVE [None]
  - THERAPEUTIC RESPONSE UNEXPECTED WITH DRUG SUBSTITUTION [None]
